FAERS Safety Report 7090675-3 (Version None)
Quarter: 2010Q4

REPORT INFORMATION
  Report Type: 
  Country: None (occurrence: None)
  Receive Date: 20101109
  Receipt Date: 20090514
  Transmission Date: 20110411
  Serious: No
  Sender: FDA-Public Use
  Company Number: US-KINGPHARMUSA00001-K200900590

PATIENT
  Age: 60 Year
  Sex: Female
  Weight: 50.794 kg

DRUGS (1)
  1. FLECTOR [Suspect]
     Indication: NEURALGIA
     Dosage: 1 PATCH, BID
     Route: 061
     Dates: start: 20090401

REACTIONS (1)
  - DRUG INEFFECTIVE [None]
